FAERS Safety Report 9254341 (Version 1)
Quarter: 2013Q1

REPORT INFORMATION
  Report Type: Spontaneous
  Country: US (occurrence: None)
  Receive Date: 20121210
  Receipt Date: 20121210
  Transmission Date: 20140127
  Serious: No
  Sender: FDA-Public Use
  Company Number: 1209USA011715

PATIENT
  Sex: Female

DRUGS (1)
  1. ZIOPTAN [Suspect]
     Indication: GLAUCOMA
     Dosage: NORMAL DOSE
     Route: 047
     Dates: end: 2012

REACTIONS (3)
  - Balance disorder [None]
  - Pain [None]
  - Vision blurred [None]
